FAERS Safety Report 6740228-9 (Version None)
Quarter: 2010Q2

REPORT INFORMATION
  Report Type: 
  Country: None (occurrence: None)
  Receive Date: 20100525
  Receipt Date: 20100512
  Transmission Date: 20101027
  Serious: Yes (Other)
  Sender: FDA-Public Use
  Company Number: B0653384A

PATIENT
  Age: 35 Year
  Sex: Female

DRUGS (1)
  1. ZYNTABAC [Suspect]
     Route: 048

REACTIONS (6)
  - CONVULSION [None]
  - DRY MOUTH [None]
  - HEADACHE [None]
  - INTENTIONAL OVERDOSE [None]
  - MUSCLE CONTRACTIONS INVOLUNTARY [None]
  - SUICIDE ATTEMPT [None]
